FAERS Safety Report 24637366 (Version 1)
Quarter: 2024Q4

REPORT INFORMATION
  Report Type: Spontaneous
  Country: US (occurrence: US)
  Receive Date: 20241119
  Receipt Date: 20241119
  Transmission Date: 20250114
  Serious: Yes (Other)
  Sender: LUPIN
  Company Number: US-LUPIN PHARMACEUTICALS INC.-2024-11157

PATIENT

DRUGS (3)
  1. DULOXETINE [Suspect]
     Active Substance: DULOXETINE
     Indication: Product used for unknown indication
     Dosage: 60 MG
     Route: 065
  2. DULOXETINE [Suspect]
     Active Substance: DULOXETINE
     Dosage: 30 MG (DOSE DECREASED)
     Route: 065
  3. DUPIXENT [Suspect]
     Active Substance: DUPILUMAB
     Indication: Eosinophilic oesophagitis
     Dosage: 300 MG, QW (PREFILLED PEN)
     Route: 058

REACTIONS (8)
  - Pneumonia [Recovered/Resolved]
  - Bronchitis [Not Recovered/Not Resolved]
  - Abdominal pain [Unknown]
  - Serum serotonin increased [Unknown]
  - Pain [Recovered/Resolved]
  - Injection site erythema [Unknown]
  - Injection site bruising [Unknown]
  - Injection site pain [Unknown]

NARRATIVE: CASE EVENT DATE: 20241001
